FAERS Safety Report 17292046 (Version 1)
Quarter: 2020Q1

REPORT INFORMATION
  Report Type: Spontaneous
  Country: BR (occurrence: BR)
  Receive Date: 20200121
  Receipt Date: 20200121
  Transmission Date: 20200409
  Serious: Yes (Other)
  Sender: FDA-Public Use
  Company Number: BR-BAYER-2019-217858

PATIENT
  Sex: Female

DRUGS (1)
  1. ULTRAVIST [Suspect]
     Active Substance: IOPROMIDE
     Indication: COMPUTERISED TOMOGRAM HEAD
     Dosage: UNK ML, ONCE
     Dates: start: 20191030, end: 20191030

REACTIONS (2)
  - Contrast media reaction [None]
  - Nausea [None]

NARRATIVE: CASE EVENT DATE: 20191030
